FAERS Safety Report 11116309 (Version 3)
Quarter: 2015Q3

REPORT INFORMATION
  Report Type: Spontaneous
  Country: US (occurrence: US)
  Receive Date: 20150515
  Receipt Date: 20150922
  Transmission Date: 20151125
  Serious: Yes (Hospitalization, Disabling, Other)
  Sender: FDA-Public Use
  Company Number: US-009507513-1204USA00520

PATIENT
  Sex: Female
  Weight: 89.8 kg

DRUGS (6)
  1. ALENDRONATE SODIUM. [Suspect]
     Active Substance: ALENDRONATE SODIUM
     Indication: OSTEOPOROSIS
     Dosage: 70 MG, UNK
     Route: 048
     Dates: start: 200802, end: 20090821
  2. CALCIUM (UNSPECIFIED) (+) VITAMIN D (UNSPECIFIED) [Concomitant]
     Active Substance: CALCIUM CARBONATE\VITAMIN D
     Indication: BONE DENSITY DECREASED
     Dosage: 1 DF, BID
  3. FOSAMAX [Suspect]
     Active Substance: ALENDRONATE SODIUM
     Indication: OSTEOPOROSIS
     Dosage: 70 MG, QW
     Route: 048
     Dates: start: 20050801, end: 200802
  4. PLAQUENIL [Concomitant]
     Active Substance: HYDROXYCHLOROQUINE SULFATE
     Indication: SYSTEMIC LUPUS ERYTHEMATOSUS
     Dosage: 200 MG, BID
  5. FOSAMAX [Suspect]
     Active Substance: ALENDRONATE SODIUM
     Indication: BONE DENSITY DECREASED
  6. PREDNISONE. [Concomitant]
     Active Substance: PREDNISONE
     Indication: SYSTEMIC LUPUS ERYTHEMATOSUS
     Dosage: 5 MG QD-3 MG 3 X PER WEEK

REACTIONS (45)
  - Hip arthroplasty [Unknown]
  - Anaemia postoperative [Unknown]
  - Regurgitation [Unknown]
  - Chronic obstructive pulmonary disease [Unknown]
  - Intramedullary rod insertion [Unknown]
  - Epistaxis [Unknown]
  - Restrictive pulmonary disease [Unknown]
  - Asthma [Unknown]
  - Vomiting [Unknown]
  - Bone disorder [Not Recovered/Not Resolved]
  - Low turnover osteopathy [Not Recovered/Not Resolved]
  - Pain [Unknown]
  - Malabsorption from administration site [Unknown]
  - Nerve compression [Unknown]
  - Mononeuropathy multiplex [Unknown]
  - Constipation [Unknown]
  - Nausea [Unknown]
  - Pain in extremity [Unknown]
  - Fall [Unknown]
  - Cough [Unknown]
  - Osteoarthritis [Unknown]
  - Anaemia of chronic disease [Unknown]
  - Rheumatoid arthritis [Unknown]
  - Fracture nonunion [Unknown]
  - Spondylolisthesis [Unknown]
  - Lung infiltration [Unknown]
  - Pituitary tumour [Unknown]
  - Diabetes mellitus [Unknown]
  - Osteoarthritis [Unknown]
  - Carpal tunnel syndrome [Unknown]
  - Bursitis [Unknown]
  - Interstitial lung disease [Unknown]
  - Abscess [Unknown]
  - Bone disorder [Unknown]
  - Bone graft [Unknown]
  - Deep vein thrombosis [Unknown]
  - Medical device removal [Unknown]
  - Femur fracture [Unknown]
  - Drug dose omission [Unknown]
  - Drug intolerance [Unknown]
  - Dyspnoea [Unknown]
  - Syncope [Unknown]
  - Osteoarthritis [Unknown]
  - Synovitis [Unknown]
  - Hypertension [Unknown]

NARRATIVE: CASE EVENT DATE: 20080124
